FAERS Safety Report 18294260 (Version 1)
Quarter: 2020Q3

REPORT INFORMATION
  Report Type: Spontaneous
  Country: CA (occurrence: CA)
  Receive Date: 20200922
  Receipt Date: 20200922
  Transmission Date: 20201103
  Serious: Yes (Life-Threatening, Hospitalization, Other)
  Sender: FDA-Public Use
  Company Number: None

PATIENT
  Age: 69 Year
  Sex: Female
  Weight: 64 kg

DRUGS (1)
  1. ALECTINIB. [Suspect]
     Active Substance: ALECTINIB
     Route: 048
     Dates: start: 20200804, end: 20200918

REACTIONS (4)
  - Acute kidney injury [None]
  - Fatigue [None]
  - Blood creatinine increased [None]
  - Somnolence [None]

NARRATIVE: CASE EVENT DATE: 20200918
